FAERS Safety Report 6344157-4 (Version None)
Quarter: 2009Q3

REPORT INFORMATION
  Report Type: 
  Country: None (occurrence: None)
  Receive Date: 20090908
  Receipt Date: 20090902
  Transmission Date: 20100115
  Serious: Yes (Death)
  Sender: FDA-Public Use
  Company Number: US-SANOFI-SYNTHELABO-F01200800353

PATIENT
  Sex: Male
  Weight: 77.1 kg

DRUGS (12)
  1. DOCETAXEL [Suspect]
     Route: 041
     Dates: start: 20080227, end: 20080227
  2. OXALIPLATIN [Suspect]
     Indication: GASTRIC CANCER
     Route: 041
     Dates: start: 20080227, end: 20080227
  3. HYDROCODONE [Concomitant]
     Indication: ABDOMINAL PAIN
     Dosage: 5/325 MG
     Route: 048
     Dates: start: 20080204, end: 20080304
  4. ZOFRAN [Concomitant]
     Indication: NAUSEA
     Route: 048
     Dates: start: 20080208, end: 20080304
  5. PHENERGAN [Concomitant]
     Indication: NAUSEA
     Route: 048
     Dates: start: 20080208, end: 20080304
  6. PRILOSEC [Concomitant]
     Indication: GASTROOESOPHAGEAL REFLUX DISEASE
     Route: 048
     Dates: start: 20071101, end: 20080304
  7. ASPIRIN [Concomitant]
     Indication: PROPHYLAXIS
     Route: 048
     Dates: start: 19970101, end: 20080304
  8. CENTRUM SILVER [Concomitant]
     Route: 048
     Dates: start: 19970101, end: 20080304
  9. METAMUCIL [Concomitant]
     Route: 048
     Dates: start: 19970101, end: 20080304
  10. GEMFIBROZIL [Concomitant]
     Indication: HYPERLIPIDAEMIA
     Route: 048
     Dates: start: 19970101, end: 20080304
  11. ATENOLOL [Concomitant]
     Indication: VENTRICULAR EXTRASYSTOLES
     Route: 048
     Dates: start: 19970101, end: 20080304
  12. CAPECITABINE [Suspect]
     Route: 048
     Dates: start: 20080207, end: 20080229

REACTIONS (2)
  - ENTEROCOLITIS [None]
  - INTESTINAL PERFORATION [None]
